FAERS Safety Report 7069974-7 (Version None)
Quarter: 2010Q4

REPORT INFORMATION
  Report Type: 
  Country: None (occurrence: None)
  Receive Date: 20101028
  Receipt Date: 20100714
  Transmission Date: 20110411
  Serious: No
  Sender: FDA-Public Use
  Company Number: US-WYE-H16389310

PATIENT
  Sex: Male

DRUGS (2)
  1. ADVIL [Suspect]
     Indication: PAIN
     Dosage: UNKNOWN
     Route: 048
  2. NAPROXEN [Suspect]

REACTIONS (1)
  - DRUG EFFECT DECREASED [None]
